FAERS Safety Report 9097571 (Version 3)
Quarter: 2013Q1

REPORT INFORMATION
  Report Type: Spontaneous
  Country: CA (occurrence: CA)
  Receive Date: 20130212
  Receipt Date: 20130307
  Transmission Date: 20140127
  Serious: Yes (Hospitalization)
  Sender: FDA-Public Use
  Company Number: CA-ROCHE-1188345

PATIENT
  Age: 45 Year
  Sex: Male

DRUGS (4)
  1. XOLAIR [Suspect]
     Indication: ASTHMA
     Route: 058
     Dates: start: 20120816
  2. XOLAIR [Suspect]
     Route: 065
     Dates: start: 20120926
  3. XOLAIR [Suspect]
     Route: 065
     Dates: start: 20130208
  4. TRIMEL [Concomitant]

REACTIONS (10)
  - Malaise [Unknown]
  - Weight decreased [Unknown]
  - Infection [Unknown]
  - Increased upper airway secretion [Unknown]
  - Pyrexia [Unknown]
  - Cough [Unknown]
  - Heart rate increased [Unknown]
  - Vomiting [Unknown]
  - Diarrhoea [Unknown]
  - Nasal congestion [Unknown]
